FAERS Safety Report 16243335 (Version 7)
Quarter: 2019Q3

REPORT INFORMATION
  Report Type: Spontaneous
  Country: US (occurrence: US)
  Receive Date: 20190426
  Receipt Date: 20190826
  Transmission Date: 20191004
  Serious: Yes (Hospitalization, Other)
  Sender: FDA-Public Use
  Company Number: US-PFIZER INC-2019173189

PATIENT
  Age: 78 Year
  Sex: Female
  Weight: 77 kg

DRUGS (9)
  1. IBRANCE [Suspect]
     Active Substance: PALBOCICLIB
     Dosage: 75 MG, CYCLIC (1 CAPSULE ORALLY EVERY MONDAY, WEDNESDAY, FRIDAY AND SUNDAY,21 OF A 28-DAY TREATMENT)
     Route: 048
  2. IBRANCE [Suspect]
     Active Substance: PALBOCICLIB
     Dosage: 75 MG, CYCLIC (75 MG EVERY OTHER DAY FOR NOW USUALLY 75 MG 21 ON 7 OFF)
     Dates: start: 20190702
  3. XOLAIR [Concomitant]
     Active Substance: OMALIZUMAB
     Indication: LUNG INFECTION
     Dosage: UNK UNK, MONTHLY [ONCE A MONTH]
  4. IBRANCE [Suspect]
     Active Substance: PALBOCICLIB
     Indication: BREAST CANCER FEMALE
     Dosage: 125 MG, UNK
  5. ALBUTEROL [SALBUTAMOL] [Concomitant]
     Active Substance: ALBUTEROL
     Dosage: UNK
  6. MUCINEX [Concomitant]
     Active Substance: GUAIFENESIN
     Dosage: UNK
  7. HYZAAR [Concomitant]
     Active Substance: HYDROCHLOROTHIAZIDE\LOSARTAN POTASSIUM
     Indication: HYPERTENSION
     Dosage: UNK
  8. IBRANCE [Suspect]
     Active Substance: PALBOCICLIB
     Dosage: 75 MG, CYCLIC (ONCE A DAY FOR 21 DAYS AND THEN OFF FOR 7 DAYS)
     Route: 048
     Dates: start: 2018
  9. DEPACON [Concomitant]
     Active Substance: VALPROATE SODIUM
     Dosage: UNK

REACTIONS (10)
  - White blood cell count decreased [Unknown]
  - Malaise [Unknown]
  - Off label use [Unknown]
  - Macular degeneration [Unknown]
  - Pyrexia [Unknown]
  - Pleurisy [Unknown]
  - Asthenia [Recovering/Resolving]
  - Pneumonia [Recovered/Resolved]
  - Chills [Recovered/Resolved]
  - Neutropenia [Unknown]

NARRATIVE: CASE EVENT DATE: 201904
